FAERS Safety Report 21573136 (Version 1)
Quarter: 2022Q4

REPORT INFORMATION
  Report Type: Spontaneous
  Country: US (occurrence: None)
  Receive Date: 20221108
  Receipt Date: 20221108
  Transmission Date: 20230113
  Serious: Yes (Death)
  Sender: FDA-Public Use
  Company Number: None

PATIENT
  Age: 62 Year
  Sex: Female

DRUGS (19)
  1. ZARXIO [Suspect]
     Active Substance: FILGRASTIM-SNDZ
     Indication: Oesophageal carcinoma
     Dosage: FREQUENCY : DAILY;?
     Route: 058
  2. ALBUTEROL [Concomitant]
  3. GABAPENTIN [Concomitant]
  4. HEPARIN [Concomitant]
     Active Substance: HEPARIN SODIUM
  5. LASIX [Concomitant]
     Active Substance: FUROSEMIDE
  6. LIDOCAINE-PRILOCAINE [Concomitant]
  7. METOPROLOL [Concomitant]
     Active Substance: METOPROLOL
  8. MS CONTIN [Concomitant]
  9. NALOXONE [Concomitant]
  10. NEULASTA [Concomitant]
  11. OLANZAPINE [Concomitant]
  12. ONDANSETRON [Concomitant]
  13. PANTOPRAZOLE [Concomitant]
  14. PERCOCET [Concomitant]
  15. POTASSIUM CHLORIDE [Concomitant]
  16. PROMETHAZINE [Concomitant]
  17. SALINE FLUSH [Concomitant]
  18. SODIUM CHLORIDE [Concomitant]
  19. ZIETENZO [Concomitant]

REACTIONS (1)
  - Death [None]

NARRATIVE: CASE EVENT DATE: 20221021
